FAERS Safety Report 5051900-3 (Version None)
Quarter: 2006Q3

REPORT INFORMATION
  Report Type: 
  Country: None (occurrence: None)
  Receive Date: 20060711
  Receipt Date: 20060616
  Transmission Date: 20061208
  Serious: Yes (Hospitalization, Other)
  Sender: FDA-Public Use
  Company Number: US200606004116

PATIENT
  Age: 84 Year
  Sex: Female

DRUGS (7)
  1. ZYPREXA [Suspect]
     Dosage: 5 MG, DAILY (1/D)
     Dates: end: 20060613
  2. TRAZODONE HCL [Concomitant]
  3. NORVASC [Concomitant]
  4. LASIX (FUROSEMIDE, FUROSEMIDE SODIUM) [Concomitant]
  5. NOVOLIN 70/30 [Concomitant]
  6. NOVOLIN R [Concomitant]
  7. ENALAPRIL MALEATE [Concomitant]

REACTIONS (5)
  - BRADYCARDIA [None]
  - HYPERTENSION [None]
  - HYPOGLYCAEMIA [None]
  - PERICARDIAL EFFUSION [None]
  - VENTRICULAR HYPERTROPHY [None]
